FAERS Safety Report 11294846 (Version 2)
Quarter: 2015Q3

REPORT INFORMATION
  Report Type: Spontaneous
  Country: US (occurrence: US)
  Receive Date: 20150723
  Receipt Date: 20150810
  Transmission Date: 20151125
  Serious: Yes (Hospitalization)
  Sender: FDA-Public Use
  Company Number: US-009507513-1507USA007220

PATIENT
  Age: 89 Year
  Sex: Female
  Weight: 45.81 kg

DRUGS (2)
  1. LORAZEPAM. [Concomitant]
     Active Substance: LORAZEPAM
  2. REMERON [Suspect]
     Active Substance: MIRTAZAPINE
     Indication: INSOMNIA
     Dosage: 15 MG, ONCE EACH NIGHT
     Route: 048

REACTIONS (3)
  - Transient ischaemic attack [Recovering/Resolving]
  - Weight decreased [Recovering/Resolving]
  - Anaemia [Recovering/Resolving]

NARRATIVE: CASE EVENT DATE: 2015
